FAERS Safety Report 9917730 (Version 1)
Quarter: 2014Q1

REPORT INFORMATION
  Report Type: Spontaneous
  Country: US (occurrence: US)
  Receive Date: 20140221
  Receipt Date: 20140221
  Transmission Date: 20141002
  Serious: No
  Sender: FDA-Public Use
  Company Number: US-LUNDBECK-DKLU1096949

PATIENT
  Sex: Female

DRUGS (6)
  1. SABRIL (FOR ORAL SOLUTION) [Suspect]
     Indication: INFANTILE SPASMS
     Dates: start: 201312
  2. SABRIL (FOR ORAL SOLUTION) [Suspect]
     Dates: start: 201312
  3. SABRIL     (TABLET) [Concomitant]
     Indication: INFANTILE SPASMS
     Dates: start: 20121123
  4. SABRIL     (TABLET) [Concomitant]
  5. SABRIL     (TABLET) [Concomitant]
     Dates: end: 201312
  6. SABRIL     (TABLET) [Concomitant]
     Dates: end: 201312

REACTIONS (2)
  - Drug intolerance [Unknown]
  - Vomiting [Unknown]
